FAERS Safety Report 10639603 (Version 2)
Quarter: 2014Q4

REPORT INFORMATION
  Report Type: Spontaneous
  Country: BR (occurrence: BR)
  Receive Date: 20141209
  Receipt Date: 20141209
  Transmission Date: 20150529
  Serious: Yes (Hospitalization)
  Sender: FDA-Public Use
  Company Number: BR-RANBAXY-2014RR-88949

PATIENT
  Age: 68 Year
  Sex: Female

DRUGS (11)
  1. CLOPIDOGREL [Suspect]
     Active Substance: CLOPIDOGREL BISULFATE
     Indication: ACUTE MYOCARDIAL INFARCTION
     Dosage: UNK
     Route: 065
  2. SIMVASTATIN. [Suspect]
     Active Substance: SIMVASTATIN
     Indication: ACUTE MYOCARDIAL INFARCTION
     Dosage: UNK
     Route: 065
  3. METHOTREXATE [Interacting]
     Active Substance: METHOTREXATE
     Indication: RHEUMATOID ARTHRITIS
     Dosage: 15 MG, WEEKLY
     Route: 065
     Dates: start: 200801
  4. LEFLUNOMIDE. [Suspect]
     Active Substance: LEFLUNOMIDE
     Indication: RHEUMATOID ARTHRITIS
     Dosage: 20 MG, DAILY
     Route: 065
  5. PREDNISONE. [Concomitant]
     Active Substance: PREDNISONE
     Indication: SYNOVITIS
     Dosage: 10 MG, DAILY
     Route: 065
  6. ASPIRIN. [Interacting]
     Active Substance: ASPIRIN
     Indication: ACUTE MYOCARDIAL INFARCTION
     Dosage: UNK
     Route: 065
  7. OMEPRAZOLE. [Interacting]
     Active Substance: OMEPRAZOLE
     Indication: ACUTE MYOCARDIAL INFARCTION
     Dosage: UNK
     Route: 065
  8. PREDNISONE. [Concomitant]
     Active Substance: PREDNISONE
     Indication: RHEUMATOID ARTHRITIS
     Dosage: 20 MG, DAILY
     Route: 065
  9. ISOSORBIDE [Suspect]
     Active Substance: ISOSORBIDE
     Indication: ACUTE MYOCARDIAL INFARCTION
     Dosage: UNK
     Route: 065
  10. METHOTREXATE [Interacting]
     Active Substance: METHOTREXATE
     Indication: RHEUMATOID ARTHRITIS
     Dosage: 10 MG, WEEKLY
     Route: 065
  11. FOLIC ACID. [Concomitant]
     Active Substance: FOLIC ACID
     Indication: PROPHYLAXIS
     Dosage: 5 MG, UNK
     Route: 065

REACTIONS (2)
  - Leukopenia [Recovered/Resolved]
  - Drug interaction [Recovered/Resolved]
